FAERS Safety Report 6295373-1 (Version None)
Quarter: 2009Q3

REPORT INFORMATION
  Report Type: 
  Country: None (occurrence: None)
  Receive Date: 20090730
  Receipt Date: 20090716
  Transmission Date: 20100115
  Serious: Yes (Death)
  Sender: FDA-Public Use
  Company Number: POMP-1000667

PATIENT
  Age: 3 Year
  Sex: Female
  Weight: 10.9 kg

DRUGS (1)
  1. MYOZYME [Suspect]
     Indication: GLYCOGEN STORAGE DISEASE TYPE II
     Dosage: 20 MG/KG, QOW, INTRAVENOUS
     Route: 042
     Dates: start: 20060101, end: 20090708

REACTIONS (4)
  - ARRHYTHMIA [None]
  - CARDIAC ARREST [None]
  - PYREXIA [None]
  - TACHYPNOEA [None]
